FAERS Safety Report 7265497-0 (Version None)
Quarter: 2011Q1

REPORT INFORMATION
  Report Type: 
  Country: None (occurrence: None)
  Receive Date: 20110131
  Receipt Date: 20110126
  Transmission Date: 20110831
  Serious: Yes (Death, Other)
  Sender: FDA-Public Use
  Company Number: PHHY2010JP57324

PATIENT
  Sex: Male

DRUGS (9)
  1. ADONA [Concomitant]
     Indication: METASTATIC RENAL CELL CARCINOMA
     Dosage: 90 MG, UNK
     Route: 048
     Dates: start: 20100519
  2. AZULENE SODIUM SULFONATE [Concomitant]
     Indication: PROPHYLAXIS
     Dosage: 200 ML, UNK
     Route: 048
     Dates: start: 20100713
  3. AMOBAN [Concomitant]
     Indication: METASTATIC RENAL CELL CARCINOMA
     Dosage: 7.5 MG, UNK
     Route: 048
     Dates: start: 20080704, end: 20081206
  4. AFINITOR [Suspect]
     Dosage: 5 MG, DAILY
     Route: 048
     Dates: start: 20100828, end: 20101116
  5. TRANSAMIN [Concomitant]
     Indication: METASTATIC RENAL CELL CARCINOMA
     Dosage: 750 MG, UNK
     Route: 048
     Dates: start: 20100519
  6. SUNITINIB MALATE [Concomitant]
     Indication: METASTATIC RENAL CELL CARCINOMA
     Dosage: UNK
     Route: 048
     Dates: start: 20091202, end: 20100208
  7. DEPAS [Concomitant]
     Indication: METASTATIC RENAL CELL CARCINOMA
     Dosage: 1.5 MG, UNK
     Route: 048
     Dates: start: 20100222, end: 20101206
  8. AFINITOR [Suspect]
     Indication: METASTATIC RENAL CELL CARCINOMA
     Dosage: 10 MG, QD
     Route: 048
     Dates: start: 20100712, end: 20100802
  9. UREPEARL [Concomitant]
     Indication: PROPHYLAXIS
     Dosage: UNK
     Dates: start: 20100720

REACTIONS (3)
  - PLEURAL EFFUSION [None]
  - NEOPLASM MALIGNANT [None]
  - STOMATITIS [None]
